FAERS Safety Report 10005955 (Version 1)
Quarter: 2014Q1

REPORT INFORMATION
  Report Type: Spontaneous
  Country: FR (occurrence: FR)
  Receive Date: 20140313
  Receipt Date: 20140313
  Transmission Date: 20141002
  Serious: Yes (Other)
  Sender: FDA-Public Use
  Company Number: FR-JNJFOC-20140217263

PATIENT
  Age: 53 Year
  Sex: Female

DRUGS (17)
  1. HALDOL [Suspect]
     Indication: PSYCHOTIC DISORDER
     Route: 030
     Dates: start: 20140212, end: 20140212
  2. SULFARLEM [Concomitant]
     Indication: PSYCHOTIC DISORDER
     Route: 065
     Dates: start: 20140129
  3. ATARAX [Concomitant]
     Indication: PSYCHOTIC DISORDER
     Route: 065
     Dates: start: 20140129
  4. ABILIFY [Concomitant]
     Indication: PSYCHOTIC DISORDER
     Route: 065
     Dates: start: 20140120
  5. ABILIFY [Concomitant]
     Indication: PSYCHOTIC DISORDER
     Route: 065
     Dates: start: 20140128
  6. ABILIFY [Concomitant]
     Indication: PSYCHOTIC DISORDER
     Route: 065
     Dates: start: 20140122
  7. ABILIFY [Concomitant]
     Indication: PSYCHOTIC DISORDER
     Route: 065
     Dates: end: 20140130
  8. XEROQUEL [Concomitant]
     Indication: PSYCHOTIC DISORDER
     Dosage: 2 TABLET
     Route: 065
     Dates: start: 20140118
  9. XEROQUEL [Concomitant]
     Indication: PSYCHOTIC DISORDER
     Route: 065
     Dates: end: 20140120
  10. XEROQUEL [Concomitant]
     Indication: PSYCHOTIC DISORDER
     Dosage: ER 300 1 TABLET
     Route: 065
     Dates: start: 20140115
  11. LOXAPAC [Concomitant]
     Indication: PSYCHOTIC DISORDER
     Route: 065
     Dates: end: 20140131
  12. LOXAPAC [Concomitant]
     Indication: PSYCHOTIC DISORDER
     Dosage: 25 DROPS
     Route: 065
     Dates: start: 20140115
  13. LOXAPAC [Concomitant]
     Indication: PSYCHOTIC DISORDER
     Dosage: 25 DROPS
     Route: 065
     Dates: start: 20140127
  14. LOXAPAC [Concomitant]
     Indication: PSYCHOTIC DISORDER
     Dosage: 25 DROPS
     Route: 065
     Dates: start: 20140128
  15. LOXAPAC [Concomitant]
     Indication: PSYCHOTIC DISORDER
     Dosage: 150 DROPS
     Route: 065
     Dates: start: 20140129
  16. TERCIAN [Concomitant]
     Indication: PSYCHOTIC DISORDER
     Dosage: 25 DROPS
     Route: 065
     Dates: start: 20140115
  17. TERCIAN [Concomitant]
     Indication: PSYCHOTIC DISORDER
     Dosage: 25 DROPS
     Route: 065
     Dates: start: 20140114

REACTIONS (2)
  - Rhabdomyolysis [Recovered/Resolved]
  - Pyrexia [Recovered/Resolved]
